FAERS Safety Report 4893311-7 (Version None)
Quarter: 2006Q1

REPORT INFORMATION
  Report Type: 
  Country: None (occurrence: None)
  Receive Date: 20060123
  Receipt Date: 20060123
  Transmission Date: 20060701
  Serious: Yes (Other)
  Sender: FDA-Public Use
  Company Number: None

PATIENT
  Sex: Male

DRUGS (1)
  1. OXYCONTIN [Suspect]
     Dosage: 80 MG Q 8 H (TID)
     Dates: start: 20040801

REACTIONS (2)
  - ABDOMINAL DISCOMFORT [None]
  - MOUTH PLAQUE [None]
